FAERS Safety Report 9507450 (Version 1)
Quarter: 2013Q3

REPORT INFORMATION
  Report Type: Spontaneous
  Country: US (occurrence: None)
  Receive Date: 20130904
  Receipt Date: 20130904
  Transmission Date: 20140515
  Serious: Yes (Death, Hospitalization)
  Sender: FDA-Public Use
  Company Number: 2013AP007756

PATIENT
  Age: 39 Year
  Sex: Male

DRUGS (1)
  1. METFORMIN HCL [Suspect]
     Indication: INTENTIONAL OVERDOSE
     Dosage: 50 KBQ
     Route: 048

REACTIONS (9)
  - Lactic acidosis [None]
  - Intentional overdose [None]
  - Renal failure [None]
  - Transaminases increased [None]
  - Acute respiratory distress syndrome [None]
  - Cardiac arrest [None]
  - Hypotension [None]
  - Haemodialysis [None]
  - Unresponsive to stimuli [None]
